FAERS Safety Report 5573123-1 (Version None)
Quarter: 2007Q4

REPORT INFORMATION
  Report Type: 
  Country: None (occurrence: None)
  Receive Date: 20071220
  Receipt Date: 20071220
  Transmission Date: 20080405
  Serious: Yes (Hospitalization)
  Sender: FDA-Public Use
  Company Number: None

PATIENT
  Age: 88 Year
  Sex: Male

DRUGS (1)
  1. AMPICILLIN [Suspect]
     Indication: URINARY TRACT INFECTION
     Dosage: 1GM  QID  IV
     Route: 042
     Dates: start: 20071126, end: 20071129

REACTIONS (1)
  - RASH [None]
